FAERS Safety Report 10746598 (Version 3)
Quarter: 2015Q2

REPORT INFORMATION
  Report Type: Report from Study
  Country: DE (occurrence: DE)
  Receive Date: 20150128
  Receipt Date: 20150424
  Transmission Date: 20150821
  Serious: Yes (Death, Hospitalization)
  Sender: FDA-Public Use
  Company Number: DE-ABBVIE-14P-062-1302223-00

PATIENT
  Age: 77 Year
  Sex: Female
  Weight: 75 kg

DRUGS (11)
  1. DUODOPA [Suspect]
     Active Substance: CARBIDOPA\LEVODOPA
     Indication: PARKINSON^S DISEASE
     Route: 050
     Dates: start: 20141024, end: 20141103
  2. DUODOPA [Suspect]
     Active Substance: CARBIDOPA\LEVODOPA
     Dosage: MD 7 ML, CRD 5 ML/H, CRN 7 ML/H, ED 2ML
     Route: 050
  3. EXELON [Concomitant]
     Active Substance: RIVASTIGMINE TARTRATE
     Indication: PRODUCT USED FOR UNKNOWN INDICATION
     Dosage: 13.3MG/24 HR 1-0-0,CHANGED DAILY
     Dates: start: 201410
  4. DUODOPA [Suspect]
     Active Substance: CARBIDOPA\LEVODOPA
     Route: 050
     Dates: start: 20141103
  5. VITAMINE C [Concomitant]
     Indication: PRODUCT USED FOR UNKNOWN INDICATION
     Dosage: 1-0-0
  6. ATACAND [Concomitant]
     Active Substance: CANDESARTAN CILEXETIL
     Indication: PRODUCT USED FOR UNKNOWN INDICATION
     Dosage: 1-0-1
  7. HYDROCHLOROTHIAZIDE. [Concomitant]
     Active Substance: HYDROCHLOROTHIAZIDE
     Indication: PRODUCT USED FOR UNKNOWN INDICATION
     Dosage: 1-0-0
  8. EXELON [Concomitant]
     Active Substance: RIVASTIGMINE TARTRATE
     Dosage: 9.5MG /24 HR 1-0-0,CHANGED DAILY
     Dates: start: 201410
  9. LEVODOPA [Concomitant]
     Active Substance: LEVODOPA
     Indication: PRODUCT USED FOR UNKNOWN INDICATION
     Dosage: 100/25MG- 1-1-1-1
  10. AMIODARONE [Concomitant]
     Active Substance: AMIODARONE
     Indication: PRODUCT USED FOR UNKNOWN INDICATION
     Dosage: 1-0-0
  11. LERCADINE [Concomitant]
     Indication: BLOOD PRESSURE INCREASED
     Dosage: AS NEEDED IN THE MORNING
     Dates: end: 201410

REACTIONS (22)
  - Haemodynamic test abnormal [Fatal]
  - Purulent discharge [Unknown]
  - Akinesia [Unknown]
  - Hyperhidrosis [Unknown]
  - Red blood cell count decreased [Unknown]
  - Tremor [Unknown]
  - General physical health deterioration [Unknown]
  - Speech disorder [Unknown]
  - Pleural effusion [Unknown]
  - Urinary incontinence [Unknown]
  - White blood cells urine positive [Unknown]
  - Blood gases abnormal [Fatal]
  - Cognitive disorder [Unknown]
  - Glycosylated haemoglobin increased [Unknown]
  - Multi-organ failure [Fatal]
  - Pneumonia aspiration [Fatal]
  - Sepsis [Fatal]
  - Reflexes abnormal [Unknown]
  - Salivary hypersecretion [Unknown]
  - Lung infiltration [Unknown]
  - Constipation [Unknown]
  - Blood creatine phosphokinase increased [Unknown]

NARRATIVE: CASE EVENT DATE: 2014
